FAERS Safety Report 5465785-4 (Version None)
Quarter: 2007Q3

REPORT INFORMATION
  Report Type: 
  Country: None (occurrence: None)
  Receive Date: 20070924
  Receipt Date: 20070912
  Transmission Date: 20080115
  Serious: Yes (Hospitalization)
  Sender: FDA-Public Use
  Company Number: B0488098A

PATIENT
  Age: 83 Year
  Sex: Female
  Weight: 76 kg

DRUGS (8)
  1. AUGMENTIN '125' [Suspect]
     Route: 042
     Dates: start: 20070731
  2. CORDARONE [Suspect]
     Indication: SUPRAVENTRICULAR TACHYCARDIA
     Dosage: 200MG THREE TIMES PER DAY
     Route: 048
     Dates: start: 20070727, end: 20070731
  3. PREVISCAN [Suspect]
     Route: 048
     Dates: end: 20070803
  4. ACTISKENAN [Concomitant]
     Dates: start: 20070725
  5. DIGOXIN [Concomitant]
     Dates: start: 20070731
  6. INEXIUM [Concomitant]
  7. STAGID [Concomitant]
  8. LASIX [Concomitant]

REACTIONS (5)
  - DRUG INTERACTION [None]
  - GASTRIC ULCER HAEMORRHAGE [None]
  - GASTROINTESTINAL HAEMORRHAGE [None]
  - HAEMATEMESIS [None]
  - INTERNATIONAL NORMALISED RATIO INCREASED [None]
